FAERS Safety Report 5001329-9 (Version None)
Quarter: 2006Q2

REPORT INFORMATION
  Report Type: 
  Country: None (occurrence: None)
  Receive Date: 20060512
  Receipt Date: 20060510
  Transmission Date: 20061013
  Serious: Yes (Hospitalization)
  Sender: FDA-Public Use
  Company Number: AU-MERCK-0605AUS00100

PATIENT
  Age: 56 Year
  Sex: Female

DRUGS (3)
  1. FOSAMAX [Suspect]
     Indication: OSTEOPOROSIS
     Route: 048
     Dates: start: 20000101
  2. ESTROPIPATE [Concomitant]
     Indication: OSTEOPOROSIS
     Route: 065
  3. ESTROPIPATE [Concomitant]
     Route: 065
     Dates: start: 19890101

REACTIONS (4)
  - BONE FISTULA [None]
  - EAR DISORDER [None]
  - JAW DISORDER [None]
  - RESORPTION BONE INCREASED [None]
